FAERS Safety Report 4720731-3 (Version None)
Quarter: 2005Q3

REPORT INFORMATION
  Report Type: 
  Country: None (occurrence: None)
  Receive Date: 20050721
  Receipt Date: 20050711
  Transmission Date: 20060218
  Serious: Yes (Hospitalization)
  Sender: FDA-Public Use
  Company Number: 2005-06-2075

PATIENT
  Age: 49 Year
  Sex: Male
  Weight: 95 kg

DRUGS (5)
  1. PAROXETINE HYDROCHLORIDE [Suspect]
     Indication: PROPHYLAXIS
     Dosage: 20MG PER DAY
     Route: 048
     Dates: start: 20050606, end: 20050629
  2. INTRON A [Suspect]
     Indication: MALIGNANT MELANOMA
     Route: 042
     Dates: start: 20050613, end: 20050628
  3. KEVATRIL [Concomitant]
     Indication: PROPHYLAXIS
     Dates: start: 20050614, end: 20050628
  4. METOCLOPRAMIDE HYDROCHLORIDE [Concomitant]
     Indication: PROPHYLAXIS
     Dates: start: 20050615, end: 20050628
  5. DICLOFENAC SODIUM [Concomitant]
     Dates: start: 20050615, end: 20050628

REACTIONS (4)
  - ANGINA PECTORIS [None]
  - ENDOTHELIAL DYSFUNCTION [None]
  - ILL-DEFINED DISORDER [None]
  - VERTIGO [None]
